FAERS Safety Report 12337723 (Version 1)
Quarter: 2016Q2

REPORT INFORMATION
  Report Type: Spontaneous
  Country: US (occurrence: None)
  Receive Date: 20160504
  Receipt Date: 20160504
  Transmission Date: 20160815
  Serious: Yes (Life-Threatening, Hospitalization)
  Sender: FDA-Public Use
  Company Number: None

PATIENT
  Age: 2 Year
  Sex: Male

DRUGS (1)
  1. BACTRIM [Suspect]
     Active Substance: SULFAMETHOXAZOLE\TRIMETHOPRIM

REACTIONS (6)
  - Pyrexia [None]
  - Toxic shock syndrome [None]
  - Lethargy [None]
  - Hypotension [None]
  - Drug hypersensitivity [None]
  - Flushing [None]

NARRATIVE: CASE EVENT DATE: 20160428
